FAERS Safety Report 16686444 (Version 2)
Quarter: 2019Q3

REPORT INFORMATION
  Report Type: Spontaneous
  Country: US (occurrence: US)
  Receive Date: 20190809
  Receipt Date: 20190911
  Transmission Date: 20191004
  Serious: No
  Sender: FDA-Public Use
  Company Number: US-ASTRAZENECA-2019SF10532

PATIENT
  Sex: Male
  Weight: 88.5 kg

DRUGS (12)
  1. OMEPRAZOLE. [Suspect]
     Active Substance: OMEPRAZOLE
     Indication: DYSPEPSIA
     Route: 048
     Dates: start: 2014
  2. CARVEDILOL. [Concomitant]
     Active Substance: CARVEDILOL
     Indication: HYPERTENSION
     Route: 048
  3. TAMSULOSIN HCI [Concomitant]
     Active Substance: TAMSULOSIN HYDROCHLORIDE
     Indication: BENIGN PROSTATIC HYPERPLASIA
  4. DUTASTERIDE. [Concomitant]
     Active Substance: DUTASTERIDE
     Indication: ILL-DEFINED DISORDER
     Route: 048
  5. FERROUS SULFATE. [Concomitant]
     Active Substance: FERROUS SULFATE
     Indication: ANAEMIA
     Route: 048
  6. VITAMIN D3 [Concomitant]
     Active Substance: CHOLECALCIFEROL
     Indication: ILL-DEFINED DISORDER
     Route: 048
  7. BYDUREON BCISE [Suspect]
     Active Substance: EXENATIDE
     Indication: BLOOD GLUCOSE INCREASED
     Route: 058
     Dates: start: 20190723
  8. GLIPIZIDE METFORMIN HCL [Concomitant]
     Indication: DIABETES MELLITUS
     Dosage: 5-500 MG, ONE TABLET TWICE A DAY, WHICH HE STARTED TAKING 3 YEARS AGO
     Route: 048
  9. LOSARTAN POTASSIUM HCTZ [Concomitant]
     Indication: HYPERTENSION
     Dosage: 100-25 MG, ONCE A DAY, WHICH HE STARTED TAKING 4 OR 5 YEARS AGO
     Route: 048
  10. OMEPRAZOLE. [Suspect]
     Active Substance: OMEPRAZOLE
     Indication: GASTROOESOPHAGEAL REFLUX DISEASE
     Route: 048
     Dates: start: 2014
  11. ATORVASTATIN CALCIUM. [Concomitant]
     Active Substance: ATORVASTATIN CALCIUM
     Indication: BLOOD CHOLESTEROL INCREASED
     Route: 048
  12. BYDUREON BCISE [Suspect]
     Active Substance: EXENATIDE
     Indication: GLYCOSYLATED HAEMOGLOBIN INCREASED
     Route: 058
     Dates: start: 20190723

REACTIONS (7)
  - Wrong technique in device usage process [Unknown]
  - Type 2 diabetes mellitus [Unknown]
  - Injection site haemorrhage [Unknown]
  - Intentional product misuse [Unknown]
  - Incorrect dose administered by device [Unknown]
  - Device issue [Unknown]
  - Injection site pain [Unknown]
